FAERS Safety Report 10031221 (Version 1)
Quarter: 2014Q1

REPORT INFORMATION
  Report Type: Spontaneous
  Country: US (occurrence: US)
  Receive Date: 20140324
  Receipt Date: 20140324
  Transmission Date: 20141002
  Serious: No
  Sender: FDA-Public Use
  Company Number: US-BIOGENIDEC-2014BI026798

PATIENT
  Sex: Female

DRUGS (25)
  1. AVONEX [Suspect]
     Indication: MULTIPLE SCLEROSIS
     Route: 030
     Dates: start: 20120313
  2. ACTOS [Concomitant]
  3. ASPIRIN CHILDRENS [Concomitant]
  4. B COMPLEX [Concomitant]
  5. CALCIUM 600 [Concomitant]
  6. CINNAMON [Concomitant]
  7. FISH OIL [Concomitant]
  8. FOLIC ACID [Concomitant]
  9. FUROSEMIDE [Concomitant]
  10. GLIMEPIRIDE [Concomitant]
  11. LASIX [Concomitant]
  12. LOSARTAN POTASSIUM [Concomitant]
  13. MAGNESIUM GLUCONATE [Concomitant]
  14. METFORMIN HCL [Concomitant]
  15. METOPROLOL TARTRATE [Concomitant]
  16. MULTIVITAL [Concomitant]
  17. OXYBUTYNIN CHLORIDE [Concomitant]
  18. POTASSIUM CHLORIDE CRYS CR [Concomitant]
  19. SIMVASTATIN [Concomitant]
  20. SPIRONOLACTONE [Concomitant]
  21. STOOL SOFTENER [Concomitant]
  22. VITAMIN C [Concomitant]
  23. VITAMIN D [Concomitant]
  24. VITAMIN E BLEND [Concomitant]
  25. WARFARIN SODIUM [Concomitant]

REACTIONS (3)
  - Abdominal discomfort [Unknown]
  - Diarrhoea [Unknown]
  - Vomiting [Unknown]
